FAERS Safety Report 10379050 (Version 1)
Quarter: 2014Q3

REPORT INFORMATION
  Report Type: Spontaneous
  Country: US (occurrence: None)
  Receive Date: 20140811
  Receipt Date: 20140811
  Transmission Date: 20150326
  Serious: No
  Sender: FDA-Public Use
  Company Number: None

PATIENT
  Age: 25 Year
  Sex: Female
  Weight: 64 kg

DRUGS (1)
  1. ISOTRETINOIN 10MG AND 20MG [Suspect]
     Active Substance: ISOTRETINOIN
     Indication: ACNE
     Route: 048
     Dates: start: 20130401, end: 20131201

REACTIONS (2)
  - Feeling abnormal [None]
  - Hair texture abnormal [None]

NARRATIVE: CASE EVENT DATE: 20131113
